FAERS Safety Report 9434171 (Version 1)
Quarter: 2013Q3

REPORT INFORMATION
  Report Type: Spontaneous
  Country: US (occurrence: US)
  Receive Date: 20130801
  Receipt Date: 20130801
  Transmission Date: 20140515
  Serious: Yes (Other)
  Sender: FDA-Public Use
  Company Number: US-BRISTOL-MYERS SQUIBB COMPANY-19146497

PATIENT
  Age: 77 Year
  Sex: Male

DRUGS (1)
  1. BYDUREON [Suspect]
     Dates: start: 201301

REACTIONS (1)
  - Pancreatic carcinoma [Not Recovered/Not Resolved]
